FAERS Safety Report 6594964-8 (Version None)
Quarter: 2010Q1

REPORT INFORMATION
  Report Type: 
  Country: None (occurrence: None)
  Receive Date: 20100218
  Receipt Date: 20100218
  Transmission Date: 20100710
  Serious: No
  Sender: FDA-Public Use
  Company Number: None

PATIENT
  Sex: Male
  Weight: 55.6 kg

DRUGS (6)
  1. PREDNISONE [Suspect]
     Dosage: 2200 MG
     Dates: end: 20100212
  2. VINCRISTINE SULFATE [Suspect]
     Dosage: 8 MG
     Dates: end: 20100212
  3. CYTARABINE [Suspect]
     Dosage: 70 MG
     Dates: end: 20100120
  4. DAUNORUBICIN HCL [Suspect]
     Dosage: 164.8 MG
     Dates: end: 20100212
  5. METHOTREXATE [Suspect]
     Dosage: 15 MG
     Dates: end: 20100129
  6. PEG-L-ASPARAGINASE (PEGASPARGASE, ONCOSPAR) [Suspect]
     Dosage: 4175 IU
     Dates: end: 20100124

REACTIONS (1)
  - BLOOD GLUCOSE INCREASED [None]
